FAERS Safety Report 21382484 (Version 1)
Quarter: 2022Q3

REPORT INFORMATION
  Report Type: Spontaneous
  Country: CN (occurrence: None)
  Receive Date: 20220927
  Receipt Date: 20220927
  Transmission Date: 20221027
  Serious: Yes (Other)
  Sender: FDA-Public Use
  Company Number: CN-ROCHE-3187981

PATIENT
  Age: 39 Year
  Sex: Female

DRUGS (8)
  1. HERCEPTIN [Suspect]
     Active Substance: TRASTUZUMAB
     Indication: Invasive ductal breast carcinoma
     Route: 065
     Dates: start: 20220119
  2. HERCEPTIN [Suspect]
     Active Substance: TRASTUZUMAB
     Dosage: 10/FEB/2022,07/MAR/2022,30/MAR/2022,22/APR/2022,12/MAY/2022
     Route: 065
  3. PERJETA [Suspect]
     Active Substance: PERTUZUMAB
     Indication: Invasive ductal breast carcinoma
     Route: 042
     Dates: start: 20220119
  4. PERJETA [Suspect]
     Active Substance: PERTUZUMAB
     Dosage: 10/FEB/2022,07/MAR/2022,30/MAR/2022,22/APR/2022,12/MAY/2022
     Route: 042
  5. PACLITAXEL [Concomitant]
     Active Substance: PACLITAXEL
     Indication: Invasive ductal breast carcinoma
     Dosage: 19/JAN/2022,10/FEB/2022,07/MAR/2022,30/MAR/2022,22/APR/2022,12/MAY/2022
  6. LOBAPLATIN [Concomitant]
     Active Substance: LOBAPLATIN
     Indication: Invasive ductal breast carcinoma
     Dosage: 19/JAN/2022,10/FEB/2022,07/MAR/2022,30/MAR/2022,22/APR/2022,12/MAY/2022
  7. ZOLEDRONIC [Concomitant]
     Active Substance: ZOLEDRONIC ACID
     Indication: Metastases to bone
  8. GOSERELIN [Concomitant]
     Active Substance: GOSERELIN
     Dosage: ON AN UNSPECIFIED DATE THE PATIENT STARTED TREATMENT WITH GOSERELIN

REACTIONS (1)
  - Myelosuppression [Unknown]

NARRATIVE: CASE EVENT DATE: 20220128
